FAERS Safety Report 5907943-8 (Version None)
Quarter: 2008Q4

REPORT INFORMATION
  Report Type: 
  Country: None (occurrence: None)
  Receive Date: 20081003
  Receipt Date: 20080922
  Transmission Date: 20090506
  Serious: Yes (Hospitalization)
  Sender: FDA-Public Use
  Company Number: NL-PFIZER INC-2008071605

PATIENT
  Sex: Female
  Weight: 65 kg

DRUGS (5)
  1. EXEMESTANE [Suspect]
     Indication: BREAST CANCER
     Route: 048
     Dates: start: 20080221
  2. EMCONCOR [Concomitant]
     Route: 048
     Dates: start: 20050703
  3. ZYRTEC [Concomitant]
     Indication: HOUSE DUST ALLERGY
     Route: 048
     Dates: start: 20060503
  4. OXYBUTYNIN [Concomitant]
     Route: 048
     Dates: start: 20070702
  5. ADIPEX [Concomitant]
     Route: 048
     Dates: start: 20070919

REACTIONS (1)
  - MUSCLE SPASMS [None]
